FAERS Safety Report 5771277-5 (Version None)
Quarter: 2008Q2

REPORT INFORMATION
  Report Type: 
  Country: None (occurrence: None)
  Receive Date: 20080613
  Receipt Date: 20080603
  Transmission Date: 20081010
  Serious: Yes (Other)
  Sender: FDA-Public Use
  Company Number: US-JNJFOC-20080600587

PATIENT
  Sex: Female

DRUGS (3)
  1. REMICADE [Suspect]
     Indication: SJOGREN'S SYNDROME
     Route: 042
  2. PLAQUENIL [Concomitant]
     Indication: SJOGREN'S SYNDROME
  3. HORMONE REPLACEMENT [Concomitant]

REACTIONS (1)
  - BREAST CANCER [None]
